FAERS Safety Report 6296073-4 (Version None)
Quarter: 2009Q3

REPORT INFORMATION
  Report Type: 
  Country: None (occurrence: None)
  Receive Date: 20090731
  Receipt Date: 20090630
  Transmission Date: 20100115
  Serious: Yes (Other)
  Sender: FDA-Public Use
  Company Number: 20090274

PATIENT
  Age: 60 Year
  Sex: Female
  Weight: 58.9676 kg

DRUGS (1)
  1. METHYLENE BLUE INJECTION, USP (0301-10) 1% [Suspect]
     Dosage: 2.5CC IN 2.5CC SALINE
     Dates: start: 20090611

REACTIONS (3)
  - OFF LABEL USE [None]
  - PAIN [None]
  - SKIN HYPERTROPHY [None]
